FAERS Safety Report 11332384 (Version 1)
Quarter: 2015Q3

REPORT INFORMATION
  Report Type: Spontaneous
  Country: US (occurrence: US)
  Receive Date: 20150803
  Receipt Date: 20150803
  Transmission Date: 20151125
  Serious: Yes (Hospitalization)
  Sender: FDA-Public Use
  Company Number: US-ELI_LILLY_AND_COMPANY-US200809005008

PATIENT
  Sex: Female

DRUGS (2)
  1. ZYPREXA [Suspect]
     Active Substance: OLANZAPINE
     Indication: DEPRESSION
     Dosage: 15 MG, UNK
     Dates: start: 2002
  2. OTHER CHOLESTEROL AND TRIGLYCERIDE REDUCERS [Concomitant]

REACTIONS (2)
  - Diabetes mellitus [Not Recovered/Not Resolved]
  - Suicidal behaviour [Not Recovered/Not Resolved]

NARRATIVE: CASE EVENT DATE: 2002
